FAERS Safety Report 25895437 (Version 1)
Quarter: 2025Q4

REPORT INFORMATION
  Report Type: Spontaneous
  Country: EU (occurrence: EU)
  Receive Date: 20251008
  Receipt Date: 20251008
  Transmission Date: 20260118
  Serious: Yes (Death)
  Sender: ASTELLAS
  Company Number: EU-ABBVIE-6483776

PATIENT
  Age: 60 Year
  Sex: Male

DRUGS (11)
  1. GILTERITINIB [Suspect]
     Active Substance: GILTERITINIB
     Indication: Product used for unknown indication
     Route: 065
     Dates: start: 20241128
  2. GILTERITINIB [Suspect]
     Active Substance: GILTERITINIB
     Dosage: RESTARTED AT REDUCED DOSE
     Route: 065
  3. GILTERITINIB [Suspect]
     Active Substance: GILTERITINIB
     Dosage: DAYS 1-5
     Route: 065
     Dates: start: 20250203, end: 20250208
  4. VENETOCLAX [Suspect]
     Active Substance: VENETOCLAX
     Indication: Acute myeloid leukaemia
     Dosage: CYCLE 1 OF AZACITIDINE/VENETOCLAX
     Route: 048
     Dates: start: 20240711, end: 20240718
  5. VENETOCLAX [Suspect]
     Active Substance: VENETOCLAX
     Dosage: CYCLE 2 OF AZACITIDINE/VENETOCLAX
     Route: 048
     Dates: start: 20240807, end: 20240814
  6. VENETOCLAX [Suspect]
     Active Substance: VENETOCLAX
     Dosage: CYCLE 3 OF AZACITIDINE/VENETOCLAX
     Route: 048
     Dates: start: 20240916
  7. AZACITIDINE [Suspect]
     Active Substance: AZACITIDINE
     Indication: Acute myeloid leukaemia
     Dosage: CYCLE 1 OF AZACITIDINE/VENETOCLAX
     Route: 065
     Dates: start: 20240711, end: 20240718
  8. AZACITIDINE [Suspect]
     Active Substance: AZACITIDINE
     Dosage: CYCLE 2 OF AZACITIDINE/VENETOCLAX
     Route: 065
     Dates: start: 20240807, end: 20240814
  9. AZACITIDINE [Suspect]
     Active Substance: AZACITIDINE
     Dosage: CYCLE 3 OF AZACITIDINE/VENETOCLAX
     Route: 065
     Dates: start: 20240916
  10. VIDAZA [Concomitant]
     Active Substance: AZACITIDINE
     Indication: Product used for unknown indication
     Dosage: DOSE MODIFIED
     Route: 065
     Dates: start: 20250203, end: 20250208
  11. CYTARABINE\DAUNORUBICIN [Concomitant]
     Active Substance: CYTARABINE\DAUNORUBICIN
     Indication: Product used for unknown indication
     Dosage: 3+7 REGIMEN
     Route: 065
     Dates: start: 20241030

REACTIONS (3)
  - Leukaemia [Fatal]
  - Sepsis [Fatal]
  - Hepatic enzyme increased [Unknown]

NARRATIVE: CASE EVENT DATE: 20241126
